FAERS Safety Report 25279475 (Version 1)
Quarter: 2025Q2

REPORT INFORMATION
  Report Type: Spontaneous
  Country: US (occurrence: US)
  Receive Date: 20250507
  Receipt Date: 20250507
  Transmission Date: 20250716
  Serious: Yes (Hospitalization, Disabling, Other)
  Sender: ORGANON
  Company Number: US-MERCK-0910USA01555

PATIENT
  Sex: Female
  Weight: 55.338 kg

DRUGS (20)
  1. FOSAMAX [Suspect]
     Active Substance: ALENDRONATE SODIUM
     Indication: Osteoporosis
     Dosage: 70 MILLIGRAM, QW
     Route: 048
     Dates: start: 20010905, end: 20090729
  2. FOSAMAX [Suspect]
     Active Substance: ALENDRONATE SODIUM
     Indication: Osteopenia
  3. FOSAMAX [Suspect]
     Active Substance: ALENDRONATE SODIUM
     Indication: Osteoporosis
     Dosage: 70 MILLIGRAM, QW (A.M)
     Route: 048
     Dates: end: 20061108
  4. FOSAMAX [Suspect]
     Active Substance: ALENDRONATE SODIUM
     Indication: Osteopenia
  5. FOSAMAX [Suspect]
     Active Substance: ALENDRONATE SODIUM
     Dosage: 70 MILLIGRAM, QW
     Route: 048
     Dates: start: 20081017, end: 200812
  6. CALCIUM\VITAMIN D [Concomitant]
     Active Substance: CALCIUM\VITAMIN D
     Route: 048
     Dates: start: 1983
  7. AMITRIPTYLINE HYDROCHLORIDE [Concomitant]
     Active Substance: AMITRIPTYLINE HYDROCHLORIDE
     Route: 048
  8. LOTENSIN HCT [Concomitant]
     Active Substance: BENAZEPRIL HYDROCHLORIDE\HYDROCHLOROTHIAZIDE
     Route: 048
     Dates: start: 2003
  9. VITAMINS NOS [Concomitant]
     Active Substance: VITAMINS
     Route: 048
     Dates: start: 2000
  10. ASPIRIN [Concomitant]
     Active Substance: ASPIRIN
     Route: 048
     Dates: start: 2007
  11. ZOCOR [Concomitant]
     Active Substance: SIMVASTATIN
     Route: 048
     Dates: start: 2003
  12. OMEGA-3-ACID ETHYL ESTERS [Concomitant]
     Active Substance: OMEGA-3-ACID ETHYL ESTERS
     Dates: start: 2000
  13. NICOTINIC ACID [Concomitant]
     Active Substance: NIACIN
     Route: 048
     Dates: start: 2005
  14. CYANOCOBALAMIN [Concomitant]
     Active Substance: CYANOCOBALAMIN
  15. DILAUDID [Concomitant]
     Active Substance: HYDROMORPHONE HYDROCHLORIDE
  16. VAGIFEM [Concomitant]
     Active Substance: ESTRADIOL
     Dosage: 25 MICROGRAM, BIW
     Route: 067
  17. PREMARIN [Concomitant]
     Active Substance: ESTROGENS, CONJUGATED
     Dosage: 0.65 MILLIGRAM, BIW
     Route: 067
  18. LEVOTHYROXINE SODIUM [Concomitant]
     Active Substance: LEVOTHYROXINE SODIUM
  19. AMITRIPTYLINE HYDROCHLORIDE [Concomitant]
     Active Substance: AMITRIPTYLINE HYDROCHLORIDE
     Indication: Sleep disorder
     Dates: start: 1985
  20. SIMVASTATIN [Concomitant]
     Active Substance: SIMVASTATIN
     Dates: start: 2003

REACTIONS (64)
  - Intramedullary rod insertion [Unknown]
  - Fall [Recovering/Resolving]
  - Arthropathy [Unknown]
  - Arthrodesis [Unknown]
  - Lumbar spinal stenosis [Unknown]
  - Chest pain [Unknown]
  - Tension headache [Recovered/Resolved]
  - Myofascial pain syndrome [Unknown]
  - Arachnoid cyst [Unknown]
  - Arachnoid cyst [Unknown]
  - Blood loss anaemia [Unknown]
  - Foot deformity [Unknown]
  - Joint range of motion decreased [Unknown]
  - Foot deformity [Unknown]
  - Postoperative wound infection [Unknown]
  - Knee arthroplasty [Unknown]
  - Pyrexia [Not Recovered/Not Resolved]
  - Vomiting [Recovered/Resolved]
  - Nausea [Recovered/Resolved]
  - Nausea [Recovered/Resolved]
  - Nausea [Recovered/Resolved]
  - Constipation [Unknown]
  - Femur fracture [Recovering/Resolving]
  - Fracture delayed union [Unknown]
  - Compression fracture [Unknown]
  - Anxiety [Unknown]
  - Rhinitis allergic [Unknown]
  - Intervertebral disc protrusion [Unknown]
  - Meniscus injury [Unknown]
  - Patellofemoral pain syndrome [Unknown]
  - Joint effusion [Unknown]
  - Iliotibial band syndrome [Unknown]
  - Arthritis [Unknown]
  - Vulval disorder [Unknown]
  - Cystitis interstitial [Unknown]
  - Gastroenteritis [Not Recovered/Not Resolved]
  - Osteoarthritis [Unknown]
  - Fatigue [Unknown]
  - Bacterial vaginosis [Unknown]
  - Anaemia [Unknown]
  - Arthritis [Unknown]
  - Atrophy [Unknown]
  - Urethral caruncle [Unknown]
  - Foot fracture [Unknown]
  - Osteopenia [Unknown]
  - Osteoarthritis [Unknown]
  - Scoliosis [Unknown]
  - Influenza [Unknown]
  - Influenza like illness [Unknown]
  - Blood glucose increased [Unknown]
  - Pain in extremity [Recovering/Resolving]
  - Arthralgia [Recovered/Resolved]
  - Nausea [Recovered/Resolved]
  - Abdominal discomfort [Recovered/Resolved]
  - Diarrhoea [Unknown]
  - Arthralgia [Unknown]
  - Back pain [Unknown]
  - Kyphosis [Not Recovered/Not Resolved]
  - Hypoaesthesia [Not Recovered/Not Resolved]
  - Neuralgia [Unknown]
  - Intervertebral disc displacement [Unknown]
  - Sensory loss [Unknown]
  - Lumbar radiculopathy [Unknown]
  - Pseudarthrosis [Unknown]

NARRATIVE: CASE EVENT DATE: 20030101
